FAERS Safety Report 24566009 (Version 2)
Quarter: 2024Q4

REPORT INFORMATION
  Report Type: Report from Study
  Country: US (occurrence: US)
  Receive Date: 20241030
  Receipt Date: 20241031
  Transmission Date: 20250114
  Serious: No
  Sender: SANDOZ
  Company Number: US-SANDOZ-SDZ2024US091210

PATIENT

DRUGS (1)
  1. CIMERLI [Suspect]
     Active Substance: RANIBIZUMAB-EQRN
     Indication: Product used for unknown indication
     Dosage: 0.5 MG
     Dates: start: 20241011, end: 20241011

REACTIONS (2)
  - Product storage error [Unknown]
  - Product contamination [Unknown]

NARRATIVE: CASE EVENT DATE: 20241011
